FAERS Safety Report 4821470-0 (Version None)
Quarter: 2005Q4

REPORT INFORMATION
  Report Type: 
  Country: None (occurrence: None)
  Receive Date: 20051103
  Receipt Date: 20051018
  Transmission Date: 20060501
  Serious: Yes (Hospitalization, Other)
  Sender: FDA-Public Use
  Company Number: USA050597934

PATIENT
  Age: 88 Year
  Sex: Female

DRUGS (1)
  1. FORTEO [Suspect]
     Indication: OSTEOPOROSIS
     Dosage: 20 UG /1 DAY
     Dates: start: 20050401

REACTIONS (10)
  - AORTIC VALVE REPAIR [None]
  - ARTERIAL DISORDER [None]
  - ASTHENIA [None]
  - CHEST PAIN [None]
  - CORONARY ARTERY SURGERY [None]
  - INCISION SITE COMPLICATION [None]
  - INJECTION SITE REACTION [None]
  - PHARMACEUTICAL PRODUCT COMPLAINT [None]
  - POST PROCEDURAL COMPLICATION [None]
  - SCRATCH [None]
